FAERS Safety Report 7457934-3 (Version None)
Quarter: 2011Q2

REPORT INFORMATION
  Report Type: 
  Country: None (occurrence: None)
  Receive Date: 20110504
  Receipt Date: 20110429
  Transmission Date: 20111010
  Serious: Yes (Other)
  Sender: FDA-Public Use
  Company Number: SG-PFIZER INC-2011093237

PATIENT
  Age: 69 Year
  Sex: Female

DRUGS (2)
  1. KEPPRA [Suspect]
     Route: 048
  2. PHENYTOIN [Suspect]
     Route: 048

REACTIONS (1)
  - LEUKOCYTOCLASTIC VASCULITIS [None]
